FAERS Safety Report 5478848-4 (Version None)
Quarter: 2007Q4

REPORT INFORMATION
  Report Type: 
  Country: None (occurrence: None)
  Receive Date: 20071002
  Receipt Date: 20070917
  Transmission Date: 20080405
  Serious: Yes (Other)
  Sender: FDA-Public Use
  Company Number: 2007BM000120

PATIENT
  Age: 46 Year
  Sex: Male

DRUGS (2)
  1. PREDNISONE [Suspect]
     Indication: SYSTEMIC LUPUS ERYTHEMATOSUS
     Dosage: 40 MG;QD
  2. ORAPRED [Suspect]

REACTIONS (1)
  - NOCARDIOSIS [None]
